FAERS Safety Report 25854004 (Version 1)
Quarter: 2025Q3

REPORT INFORMATION
  Report Type: Spontaneous
  Country: US (occurrence: US)
  Receive Date: 20250926
  Receipt Date: 20250926
  Transmission Date: 20251020
  Serious: Yes (Death, Other)
  Sender: JAZZ
  Company Number: US-JAZZ PHARMACEUTICALS-2025-US-022762

PATIENT
  Age: 7 Year
  Sex: Male

DRUGS (1)
  1. EPIDIOLEX [Suspect]
     Active Substance: CANNABIDIOL
     Indication: Idiopathic generalised epilepsy

REACTIONS (6)
  - Cough [Fatal]
  - Lethargy [Fatal]
  - Productive cough [Fatal]
  - Respiratory failure [Fatal]
  - Unresponsive to stimuli [Fatal]
  - Off label use [Unknown]
